FAERS Safety Report 8866104 (Version 2)
Quarter: 2013Q4

REPORT INFORMATION
  Report Type: Spontaneous
  Country: GB (occurrence: GB)
  Receive Date: 20121025
  Receipt Date: 20131011
  Transmission Date: 20140711
  Serious: Yes (Other)
  Sender: FDA-Public Use
  Company Number: GB-MYLANLABS-2012S1021464

PATIENT
  Age: 50 Year
  Sex: Male
  Weight: 90 kg

DRUGS (2)
  1. NAPROXEN [Suspect]
     Indication: EPICONDYLITIS
     Route: 048
     Dates: start: 20120903, end: 20120927
  2. CLOMIPRAMINE [Concomitant]
     Indication: PRODUCT USED FOR UNKNOWN INDICATION
     Route: 048
     Dates: start: 20120119

REACTIONS (1)
  - Contusion [Not Recovered/Not Resolved]
